FAERS Safety Report 5888370-9 (Version None)
Quarter: 2008Q3

REPORT INFORMATION
  Report Type: 
  Country: None (occurrence: None)
  Receive Date: 20080918
  Receipt Date: 20080912
  Transmission Date: 20090109
  Serious: Yes (Hospitalization, Other)
  Sender: FDA-Public Use
  Company Number: US-TEVA-177466USA

PATIENT
  Age: 58 Year
  Sex: Female

DRUGS (3)
  1. ETOPOSIDE [Suspect]
     Route: 042
  2. CARMUSTINE [Suspect]
     Route: 042
  3. CYCLOPHOSPHAMIDE [Suspect]
     Dosage: 2.29 G WITH MESNA
     Route: 042

REACTIONS (1)
  - LEFT VENTRICULAR DYSFUNCTION [None]
